FAERS Safety Report 20151384 (Version 4)
Quarter: 2024Q1

REPORT INFORMATION
  Report Type: Spontaneous
  Country: US (occurrence: US)
  Receive Date: 20211206
  Receipt Date: 20240301
  Transmission Date: 20240409
  Serious: Yes (Other)
  Sender: FDA-Public Use
  Company Number: US-PFIZER INC-202101639073

PATIENT
  Age: 63 Year
  Sex: Female
  Weight: 265 kg

DRUGS (3)
  1. SOLU-CORTEF [Suspect]
     Active Substance: HYDROCORTISONE SODIUM SUCCINATE
     Indication: Addison^s disease
     Dosage: 2:1 RATIO 72 UNITS PER DAY
     Dates: start: 20210913
  2. SOLU-CORTEF [Suspect]
     Active Substance: HYDROCORTISONE SODIUM SUCCINATE
     Dosage: 100 MG
     Dates: start: 202111
  3. SOLU-CORTEF [Suspect]
     Active Substance: HYDROCORTISONE SODIUM SUCCINATE
     Dosage: UNK

REACTIONS (15)
  - Near death experience [Unknown]
  - Erythema [Unknown]
  - Urticaria [Unknown]
  - Rash macular [Unknown]
  - Fluid retention [Recovering/Resolving]
  - Pruritus [Unknown]
  - Contusion [Unknown]
  - Weight fluctuation [Unknown]
  - Peripheral swelling [Unknown]
  - Feeling hot [Unknown]
  - Pancreatic disorder [Unknown]
  - Swelling [Unknown]
  - Lymphoedema [Unknown]
  - Staphylococcal infection [Unknown]
  - Infection [Unknown]

NARRATIVE: CASE EVENT DATE: 20211101
